FAERS Safety Report 5240306-X (Version None)
Quarter: 2007Q1

REPORT INFORMATION
  Report Type: 
  Country: None (occurrence: None)
  Receive Date: 20061208
  Receipt Date: 20050222
  Transmission Date: 20070707
  Serious: Yes (Other)
  Sender: FDA-Public Use
  Company Number: 2004UW15003

PATIENT
  Age: 71 Year
  Sex: Male
  Weight: 89.8122 kg

DRUGS (2)
  1. CRESTOR [Suspect]
     Indication: BLOOD CHOLESTEROL INCREASED
     Dosage: 10 MG QD PO
     Route: 048
     Dates: start: 20040401, end: 20040401
  2. MAXZIDE [Concomitant]

REACTIONS (5)
  - ASTHENIA [None]
  - CONSTIPATION [None]
  - HERPES ZOSTER [None]
  - MYALGIA [None]
  - WEIGHT DECREASED [None]
